FAERS Safety Report 5803961-9 (Version None)
Quarter: 2008Q3

REPORT INFORMATION
  Report Type: 
  Country: None (occurrence: None)
  Receive Date: 20080703
  Receipt Date: 20080617
  Transmission Date: 20090109
  Serious: Yes (Other)
  Sender: FDA-Public Use
  Company Number: 8033672

PATIENT
  Sex: Male

DRUGS (1)
  1. XYZAL [Suspect]
     Dosage: 5 MG 2/D PO
     Route: 048

REACTIONS (3)
  - INCORRECT DOSE ADMINISTERED [None]
  - ROAD TRAFFIC ACCIDENT [None]
  - SOMNAMBULISM [None]
